FAERS Safety Report 12606597 (Version 1)
Quarter: 2016Q3

REPORT INFORMATION
  Report Type: Spontaneous
  Country: US (occurrence: None)
  Receive Date: 20160728
  Receipt Date: 20160728
  Transmission Date: 20161109
  Serious: No
  Sender: FDA-Public Use
  Company Number: None

PATIENT
  Sex: Female

DRUGS (2)
  1. INSULIN [Suspect]
     Active Substance: INSULIN NOS
  2. VICTOZA [Suspect]
     Active Substance: LIRAGLUTIDE

REACTIONS (3)
  - Blood glucose decreased [None]
  - Feeling jittery [None]
  - Glycosylated haemoglobin increased [None]
